FAERS Safety Report 7717304-7 (Version None)
Quarter: 2011Q3

REPORT INFORMATION
  Report Type: 
  Country: None (occurrence: None)
  Receive Date: 20110830
  Receipt Date: 20110815
  Transmission Date: 20111222
  Serious: Yes (Other)
  Sender: FDA-Public Use
  Company Number: CA-CELGENEUS-028-21880-11081768

PATIENT
  Sex: Female

DRUGS (11)
  1. AMLODIPINE [Concomitant]
     Route: 065
  2. DOMPERIDONE [Concomitant]
     Route: 065
  3. OXAZEPAM [Concomitant]
     Route: 065
  4. FENTANYL [Concomitant]
     Route: 065
  5. OXYCET [Concomitant]
     Route: 065
  6. LEVOTHYROXINE SODIUM [Concomitant]
     Route: 065
  7. DEXAMETHASONE [Concomitant]
     Route: 065
  8. LACTULOSE [Concomitant]
     Route: 065
  9. DOCUSATE [Concomitant]
     Route: 065
  10. REVLIMID [Suspect]
     Dosage: 10 MILLIGRAM
     Route: 048
     Dates: start: 20101022
  11. ASPIRIN [Concomitant]
     Route: 065

REACTIONS (1)
  - SPINAL DISORDER [None]
